FAERS Safety Report 10770222 (Version 4)
Quarter: 2015Q2

REPORT INFORMATION
  Report Type: Spontaneous
  Country: US (occurrence: US)
  Receive Date: 20150206
  Receipt Date: 20150629
  Transmission Date: 20150821
  Serious: Yes (Hospitalization)
  Sender: FDA-Public Use
  Company Number: US-BAYER-2015-017872

PATIENT
  Age: 33 Year
  Sex: Female
  Weight: 74.83 kg

DRUGS (2)
  1. MIRENA [Suspect]
     Active Substance: LEVONORGESTREL
     Indication: CONTRACEPTION
     Dosage: 20 MCG/24HR, CONT
     Route: 015
     Dates: start: 20101120, end: 20130208
  2. TRAZODONE [Concomitant]
     Active Substance: TRAZODONE HYDROCHLORIDE
     Indication: SLEEP DISORDER THERAPY

REACTIONS (8)
  - Device issue [Not Recovered/Not Resolved]
  - Uterine perforation [Not Recovered/Not Resolved]
  - Injury [Not Recovered/Not Resolved]
  - Device difficult to use [None]
  - Device difficult to use [None]
  - Colon injury [Not Recovered/Not Resolved]
  - Pelvic pain [Not Recovered/Not Resolved]
  - Menstruation irregular [None]

NARRATIVE: CASE EVENT DATE: 20130122
